FAERS Safety Report 11046319 (Version 2)
Quarter: 2015Q2

REPORT INFORMATION
  Report Type: Spontaneous
  Country: US (occurrence: US)
  Receive Date: 20150419
  Receipt Date: 20150607
  Transmission Date: 20150821
  Serious: No
  Sender: FDA-Public Use
  Company Number: US-ASTRAZENECA-2015SE33470

PATIENT
  Sex: Male

DRUGS (1)
  1. SYMBICORT [Suspect]
     Active Substance: BUDESONIDE\FORMOTEROL FUMARATE DIHYDRATE
     Dosage: 160/4.5 UG, TWO PUFFS TWICE DAILY
     Route: 055
     Dates: start: 20150323

REACTIONS (3)
  - Intentional product misuse [Unknown]
  - Dyspnoea [Unknown]
  - Drug dose omission [Unknown]
